FAERS Safety Report 20681734 (Version 1)
Quarter: 2022Q2

REPORT INFORMATION
  Report Type: Spontaneous
  Country: US (occurrence: US)
  Receive Date: 20220406
  Receipt Date: 20220406
  Transmission Date: 20220721
  Serious: No
  Sender: FDA-Public Use
  Company Number: US-drreddys-SPO/USA/22/0147941

PATIENT
  Age: 60 Year
  Sex: Male
  Weight: 95.85 kg

DRUGS (1)
  1. ICOSAPENT ETHYL [Suspect]
     Active Substance: ICOSAPENT ETHYL
     Indication: Hypertriglyceridaemia
     Dates: start: 20220317

REACTIONS (3)
  - Product residue present [Unknown]
  - Treatment noncompliance [Unknown]
  - Product quality issue [Unknown]
